FAERS Safety Report 6260878-6 (Version None)
Quarter: 2009Q3

REPORT INFORMATION
  Report Type: 
  Country: None (occurrence: None)
  Receive Date: 20090707
  Receipt Date: 20090626
  Transmission Date: 20100115
  Serious: Yes (Other)
  Sender: FDA-Public Use
  Company Number: GXKR2009GB07381

PATIENT
  Age: 38 Year
  Sex: Female
  Weight: 60 kg

DRUGS (2)
  1. METRONIDAZOLE [Suspect]
     Indication: VAGINAL INFECTION
     Dosage: 2 G,
     Dates: start: 20081212
  2. CLINDAMYCIN HCL [Concomitant]

REACTIONS (3)
  - DEMYELINATION [None]
  - PAIN [None]
  - PARAESTHESIA [None]
